FAERS Safety Report 5091361-1 (Version None)
Quarter: 2006Q3

REPORT INFORMATION
  Report Type: 
  Country: None (occurrence: None)
  Receive Date: 20060829
  Receipt Date: 20060824
  Transmission Date: 20061208
  Serious: Yes (Other)
  Sender: FDA-Public Use
  Company Number: GB-BAYER-200611043BNE

PATIENT

DRUGS (1)
  1. NIFEDIPINE [Suspect]

REACTIONS (1)
  - SCOTOMA [None]
